FAERS Safety Report 10043501 (Version 1)
Quarter: 2014Q1

REPORT INFORMATION
  Report Type: Spontaneous
  Country: US (occurrence: None)
  Receive Date: 20140327
  Receipt Date: 20140327
  Transmission Date: 20141002
  Serious: Yes (Hospitalization)
  Sender: FDA-Public Use
  Company Number: None

PATIENT
  Age: 73 Year
  Sex: Male

DRUGS (12)
  1. XARELTO 20MG JANSSEN [Suspect]
     Route: 048
  2. ASPIRIN [Concomitant]
  3. CLONIDINE [Concomitant]
  4. COSOPT PF [Concomitant]
  5. ESTER-C [Concomitant]
  6. GABAPENTIN [Concomitant]
  7. LOSARTAN-HYDROCHLOROTHIAZIDE (UNKNOWN) [Concomitant]
  8. METOPROLOL SUCCINATE [Concomitant]
  9. OMEGA-3 POLYUNSATURATED FATTY ACIDS [Concomitant]
  10. RELAFEN [AUTO-SUB TO OXAPROZIN] [Concomitant]
  11. TAMSULOSIN [Concomitant]
  12. XARELTO [Concomitant]

REACTIONS (1)
  - Haemorrhage intracranial [None]
